FAERS Safety Report 12205209 (Version 1)
Quarter: 2016Q1

REPORT INFORMATION
  Report Type: Spontaneous
  Country: BR (occurrence: BR)
  Receive Date: 20160323
  Receipt Date: 20160323
  Transmission Date: 20160526
  Serious: Yes (Hospitalization, Other)
  Sender: FDA-Public Use
  Company Number: BR-ASTRAZENECA-2016SE29887

PATIENT
  Age: 573 Month
  Sex: Male
  Weight: 83 kg

DRUGS (2)
  1. SYMBICORT [Suspect]
     Active Substance: BUDESONIDE\FORMOTEROL FUMARATE DIHYDRATE
     Indication: DYSPNOEA
     Dosage: SYMBICORT FREQUENCY WAS INCREASED , UNKNOWN
     Route: 055
     Dates: start: 201509
  2. SYMBICORT [Suspect]
     Active Substance: BUDESONIDE\FORMOTEROL FUMARATE DIHYDRATE
     Indication: DYSPNOEA
     Dosage: 320/9 MCG, AT NIGHT
     Route: 055
     Dates: start: 201509

REACTIONS (3)
  - Pulmonary mass [Unknown]
  - Pleural effusion [Not Recovered/Not Resolved]
  - Weight decreased [Not Recovered/Not Resolved]

NARRATIVE: CASE EVENT DATE: 201509
